FAERS Safety Report 5201581-0 (Version None)
Quarter: 2006Q4

REPORT INFORMATION
  Report Type: 
  Country: None (occurrence: None)
  Receive Date: 20061006
  Receipt Date: 20050916
  Transmission Date: 20070319
  Serious: Yes (Other)
  Sender: FDA-Public Use
  Company Number: PHHO2005US14784

PATIENT
  Sex: Female

DRUGS (6)
  1. ESTALIS COMBIPATCH(ESTRADIOL, NORETHISTERONE ACETATE) TRANS-THERAPEUTI [Suspect]
     Indication: DRUG USE FOR UNKNOWN INDICATION
     Dates: start: 19990101
  2. PREMARIN [Suspect]
     Indication: DRUG USE FOR UNKNOWN INDICATION
     Dates: start: 19890101, end: 19990101
  3. PROVERA [Suspect]
     Indication: DRUG USE FOR UNKNOWN INDICATION
     Dates: start: 19890101, end: 19990101
  4. PREMPRO [Suspect]
     Indication: DRUG USE FOR UNKNOWN INDICATION
     Dates: start: 20000101, end: 20020101
  5. PROVERA [Suspect]
     Indication: DRUG USE FOR UNKNOWN INDICATION
     Dates: start: 19890101, end: 19990101
  6. PREMPRO [Suspect]
     Indication: DRUG USE FOR UNKNOWN INDICATION
     Dates: start: 20000101, end: 20020101

REACTIONS (1)
  - BREAST CANCER [None]
